FAERS Safety Report 10570867 (Version 5)
Quarter: 2016Q1

REPORT INFORMATION
  Report Type: Spontaneous
  Country: US (occurrence: US)
  Receive Date: 20141107
  Receipt Date: 20160216
  Transmission Date: 20160525
  Serious: Yes (Hospitalization, Other)
  Sender: FDA-Public Use
  Company Number: US-BAYER-2014-164545

PATIENT
  Age: 32 Year
  Sex: Female
  Weight: 113.38 kg

DRUGS (1)
  1. MIRENA [Suspect]
     Active Substance: LEVONORGESTREL
     Indication: CONTRACEPTION
     Dosage: 20 MCG/24HR, CONT
     Route: 015
     Dates: start: 200608, end: 20080610

REACTIONS (10)
  - Abdominal pain upper [None]
  - Bladder fibrosis [None]
  - Back pain [None]
  - Maternal exposure before pregnancy [None]
  - Fallopian tube disorder [None]
  - Uterine scar [None]
  - Abortion spontaneous [None]
  - Abdominal pain lower [None]
  - Device dislocation [None]
  - Amenorrhoea [None]

NARRATIVE: CASE EVENT DATE: 2006
